FAERS Safety Report 19117426 (Version 1)
Quarter: 2021Q2

REPORT INFORMATION
  Report Type: Spontaneous
  Country: US (occurrence: US)
  Receive Date: 20210410
  Receipt Date: 20210410
  Transmission Date: 20210717
  Serious: No
  Sender: FDA-Public Use
  Company Number: US-BIOGEN-2019BI00814165

PATIENT
  Age: 44 Year
  Sex: Female

DRUGS (3)
  1. TECFIDERA [Suspect]
     Active Substance: DIMETHYL FUMARATE
     Dosage: TAKE 120 MG CAPSULE TWICE DAILY FOR 7 DAYS AND THEN INCREASE TO 240 MG CAPSULE TWICE DAILY
     Route: 048
     Dates: start: 20191108, end: 2019
  2. TECFIDERA [Suspect]
     Active Substance: DIMETHYL FUMARATE
     Route: 065
     Dates: start: 20190418, end: 20190502
  3. TECFIDERA [Suspect]
     Active Substance: DIMETHYL FUMARATE
     Indication: MULTIPLE SCLEROSIS
     Dosage: TAKE 120 MG CAPSULE TWICE DAILY FOR 7 DAYS AND THEN INCREASE TO 240 MG CAPSULE TWICE DAILY
     Route: 048
     Dates: start: 20191108, end: 201911

REACTIONS (3)
  - Bipolar disorder [Not Recovered/Not Resolved]
  - Depression [Not Recovered/Not Resolved]
  - Hypersensitivity [Recovered/Resolved]

NARRATIVE: CASE EVENT DATE: 20191118
